FAERS Safety Report 9663807 (Version 4)
Quarter: 2013Q4

REPORT INFORMATION
  Report Type: Spontaneous
  Country: NO (occurrence: NO)
  Receive Date: 20131101
  Receipt Date: 20131220
  Transmission Date: 20140711
  Serious: Yes (Hospitalization, Other)
  Sender: FDA-Public Use
  Company Number: NO-NOVOPROD-390077

PATIENT
  Age: 73 Year
  Sex: Female
  Weight: 53.5 kg

DRUGS (4)
  1. VAGIFEM [Suspect]
     Indication: MUCOSAL DRYNESS
     Dosage: 2-3 TIMES A WEEK
     Route: 067
     Dates: start: 20050301
  2. VAGIFEM [Suspect]
     Dosage: 2-3 TIMES A WEEK
     Route: 067
     Dates: start: 2012, end: 20130529
  3. ALBYL [Concomitant]
     Dosage: 1 A DAY
     Route: 048
     Dates: start: 200607
  4. MONOKET [Concomitant]
     Dosage: 1 A DAY
     Route: 048
     Dates: start: 200607

REACTIONS (5)
  - Femur fracture [Not Recovered/Not Resolved]
  - Breast cancer [Not Recovered/Not Resolved]
  - Abdominal pain upper [Not Recovered/Not Resolved]
  - Breast cyst [Not Recovered/Not Resolved]
  - Biliary colic [Not Recovered/Not Resolved]
